FAERS Safety Report 9157808 (Version 1)
Quarter: 2013Q1

REPORT INFORMATION
  Report Type: Spontaneous
  Country: US (occurrence: US)
  Receive Date: 20130312
  Receipt Date: 20130312
  Transmission Date: 20140127
  Serious: No
  Sender: FDA-Public Use
  Company Number: US-009507513-1303USA005110

PATIENT
  Sex: Female

DRUGS (7)
  1. VICTRELIS [Suspect]
     Dosage: 4 DF, Q8H
     Route: 048
  2. PEGASYS [Suspect]
  3. RIBAPAK [Suspect]
     Dosage: 1000/ DAY
  4. PROTONIX [Concomitant]
     Dosage: 20 MG, UNK
  5. PROMETHAZINE [Concomitant]
     Dosage: 25 MG/ML
  6. CITALOPRAM [Concomitant]
     Dosage: 10 MG, UNK
  7. LUNESTA [Concomitant]
     Dosage: 1 MG, UNK

REACTIONS (2)
  - Depression [Unknown]
  - Fatigue [Unknown]
